FAERS Safety Report 16645178 (Version 2)
Quarter: 2019Q3

REPORT INFORMATION
  Report Type: Report from Study
  Country: JP (occurrence: JP)
  Receive Date: 20190729
  Receipt Date: 20190927
  Transmission Date: 20191004
  Serious: Yes (Other)
  Sender: FDA-Public Use
  Company Number: JP-TAKEDA-2019TUS045679

PATIENT
  Age: 48 Year
  Sex: Male

DRUGS (6)
  1. VANCOMYCIN                         /00314402/ [Concomitant]
     Active Substance: VANCOMYCIN
     Indication: PYREXIA
     Dosage: UNK
     Route: 065
  2. PONATINIB [Suspect]
     Active Substance: PONATINIB
     Dosage: 15 MILLIGRAM
     Route: 048
     Dates: start: 20171011, end: 20171022
  3. PONATINIB [Suspect]
     Active Substance: PONATINIB
     Dosage: 30 MILLIGRAM
     Route: 048
     Dates: start: 20171023, end: 20171204
  4. PONATINIB [Suspect]
     Active Substance: PONATINIB
     Indication: ACUTE LYMPHOCYTIC LEUKAEMIA
     Dosage: 45 MILLIGRAM
     Route: 048
     Dates: start: 20171003, end: 20171004
  5. FLUCONAZOLE. [Concomitant]
     Active Substance: FLUCONAZOLE
     Indication: PROPHYLAXIS
     Dosage: UNK
     Route: 065
  6. MEROPENEM                          /01250502/ [Concomitant]
     Active Substance: MEROPENEM
     Indication: PYREXIA
     Dosage: UNK
     Route: 065

REACTIONS (2)
  - Disorientation [Recovered/Resolved]
  - Pyrexia [Recovered/Resolved]

NARRATIVE: CASE EVENT DATE: 20171004
